FAERS Safety Report 8257263-4 (Version None)
Quarter: 2012Q2

REPORT INFORMATION
  Report Type: 
  Country: None (occurrence: None)
  Receive Date: 20120403
  Receipt Date: 20120329
  Transmission Date: 20120825
  Serious: No
  Sender: FDA-Public Use
  Company Number: US-PFIZER INC-2012081190

PATIENT
  Sex: Male

DRUGS (1)
  1. DETROL LA [Suspect]
     Dosage: UNK
     Route: 048
     Dates: end: 20120301

REACTIONS (2)
  - ABDOMINAL PAIN LOWER [None]
  - DYSURIA [None]
